FAERS Safety Report 5032083-2 (Version None)
Quarter: 2006Q2

REPORT INFORMATION
  Report Type: 
  Country: None (occurrence: None)
  Receive Date: 20060619
  Receipt Date: 20060602
  Transmission Date: 20061013
  Serious: Yes (Hospitalization, Other)
  Sender: FDA-Public Use
  Company Number: US200604004102

PATIENT
  Age: 75 Year
  Sex: Female

DRUGS (11)
  1. EVISTA [Suspect]
     Indication: OSTEOPOROSIS
     Dosage: 60 MG DAILY (1/D )
     Dates: end: 20060418
  2. CYMBALTA [Suspect]
     Indication: BACK PAIN
     Dosage: 30 MG DAILY (1/D)
     Dates: start: 20050425
  3. FORTEO [Suspect]
     Indication: OSTEOPOROSIS
     Dates: start: 20060418
  4. FORTEO PEN (FORTEO PEN) [Concomitant]
  5. CALCIUM (CALCIUM) [Concomitant]
  6. CALCITONIN SALMON [Concomitant]
  7. VITAMIN D [Concomitant]
  8. VITAMIN D [Concomitant]
  9. PROPOXYPHENE (HCL) (PROPOXPHENE HYDROCHLORIDE) [Concomitant]
  10. LORCET-HD [Concomitant]
  11. OXYCODONE (OXYCODONE) [Concomitant]

REACTIONS (11)
  - ACCIDENT [None]
  - BACK PAIN [None]
  - BONE DENSITY DECREASED [None]
  - FALL [None]
  - LUMBAR VERTEBRAL FRACTURE [None]
  - NEURALGIA [None]
  - PAIN [None]
  - PELVIC FRACTURE [None]
  - SPINAL DISORDER [None]
  - SPINAL OSTEOARTHRITIS [None]
  - SWELLING [None]
